FAERS Safety Report 6106118-X (Version None)
Quarter: 2009Q1

REPORT INFORMATION
  Report Type: 
  Country: None (occurrence: None)
  Receive Date: 20090306
  Receipt Date: 20090220
  Transmission Date: 20090719
  Serious: Yes (Hospitalization, Other)
  Sender: FDA-Public Use
  Company Number: PHHY2009MX05213

PATIENT
  Sex: Male

DRUGS (5)
  1. DIOVAN HCT [Suspect]
     Indication: HYPERTENSION
     Dosage: 1 DF, QD
     Route: 048
     Dates: start: 20080807, end: 20090201
  2. DIOVAN HCT [Suspect]
     Dosage: UNK
  3. IMDUR [Concomitant]
     Dosage: 1 DF, QD
     Dates: start: 20081201
  4. CONCOR [Concomitant]
     Dosage: 1 DF, QD
     Dates: start: 20081201
  5. FUROSEMIDE [Concomitant]
     Dosage: 1 DF, QD

REACTIONS (4)
  - CARDIOMEGALY [None]
  - HYDROCELE [None]
  - HYDROCELE OPERATION [None]
  - HYPERTENSION [None]
